FAERS Safety Report 9147693 (Version 1)
Quarter: 2013Q1

REPORT INFORMATION
  Report Type: Report from Study
  Country: NL (occurrence: NL)
  Receive Date: 20130307
  Receipt Date: 20130307
  Transmission Date: 20140127
  Serious: Yes (Hospitalization)
  Sender: FDA-Public Use
  Company Number: NL-AMGEN-NLDCT2013015964

PATIENT
  Age: 44 Year
  Sex: Male
  Weight: 84 kg

DRUGS (8)
  1. PEGFILGRASTIM [Suspect]
     Indication: MALIGNANT LYMPHOID NEOPLASM
     Dosage: 6 MG, UNK
     Route: 058
     Dates: start: 20120118
  2. RITUXIMAB [Concomitant]
     Indication: MALIGNANT LYMPHOID NEOPLASM
     Dosage: 800 MG, UNK
     Route: 042
     Dates: start: 20120117
  3. PREDNISONE [Concomitant]
     Indication: MALIGNANT LYMPHOID NEOPLASM
     Dosage: 100 MG, UNK
     Route: 048
     Dates: start: 20120117
  4. CYCLOPHOSPHAMIDE [Concomitant]
     Indication: MALIGNANT LYMPHOID NEOPLASM
     Dosage: 1620 MG, UNK
     Route: 042
     Dates: start: 20120117
  5. DOXORUBICIN [Concomitant]
     Indication: MALIGNANT LYMPHOID NEOPLASM
     Dosage: 108 MG, UNK
     Route: 042
     Dates: start: 20120117
  6. VINCRISTINE [Concomitant]
     Indication: MALIGNANT LYMPHOID NEOPLASM
     Dosage: 2 MG, UNK
     Route: 042
     Dates: start: 20120117
  7. COTRIMOXAZOLE [Concomitant]
     Dosage: 480 MG, UNK
     Route: 048
     Dates: start: 20120117, end: 20120201
  8. VALACICLOVIR [Concomitant]
     Dosage: 500 MG, UNK
     Route: 048
     Dates: start: 20120117, end: 20120201

REACTIONS (2)
  - Abdominal abscess [Recovered/Resolved with Sequelae]
  - Wound infection [Recovered/Resolved]
